FAERS Safety Report 15168822 (Version 1)
Quarter: 2018Q3

REPORT INFORMATION
  Report Type: Spontaneous
  Country: US (occurrence: US)
  Receive Date: 20180720
  Receipt Date: 20180720
  Transmission Date: 20181010
  Serious: Yes (Other)
  Sender: FDA-Public Use
  Company Number: US-GLENMARK PHARMACEUTICALS-2018GMK036032

PATIENT
  Age: 59 Year
  Sex: Male

DRUGS (2)
  1. POSACONAZOLE [Interacting]
     Active Substance: POSACONAZOLE
     Indication: ACUTE PULMONARY HISTOPLASMOSIS
     Dosage: UNK
     Route: 065
  2. TACROLIMUS. [Suspect]
     Active Substance: TACROLIMUS
     Indication: IMMUNOSUPPRESSANT DRUG THERAPY
     Dosage: UNK
     Route: 065

REACTIONS (8)
  - Decreased appetite [Recovering/Resolving]
  - Asthenia [Recovering/Resolving]
  - Drug level increased [Recovered/Resolved]
  - Drug interaction [Unknown]
  - Myalgia [Recovering/Resolving]
  - Toxicity to various agents [Recovered/Resolved]
  - Weight decreased [Recovering/Resolving]
  - Chills [Recovering/Resolving]
